FAERS Safety Report 4823212-1 (Version None)
Quarter: 2005Q4

REPORT INFORMATION
  Report Type: 
  Country: None (occurrence: None)
  Receive Date: 20051104
  Receipt Date: 20051031
  Transmission Date: 20060501
  Serious: Yes (Death)
  Sender: FDA-Public Use
  Company Number: 2004-122809-NL

PATIENT
  Age: 90 Year
  Sex: Female

DRUGS (9)
  1. MIRTAZAPINE [Suspect]
     Indication: DEPRESSION
     Dosage: 15 MG QD ORAL
     Route: 048
     Dates: start: 20030213, end: 20041109
  2. MIRTAZAPINE [Suspect]
     Indication: INSOMNIA
     Dosage: 15 MG QD ORAL
     Route: 048
     Dates: start: 20030213, end: 20041109
  3. DONEPEZIL HCL [Suspect]
     Indication: DEMENTIA
     Dosage: 10 MG QD ORAL
     Route: 048
     Dates: start: 20020201, end: 20041109
  4. DICLOFENAC SODIUM [Concomitant]
  5. OMEPRAZOLE [Concomitant]
  6. ROFECOXIB [Concomitant]
  7. FERROUS SULFATE TAB [Concomitant]
  8. CO-PROXAMOL [Concomitant]
  9. MICRALAX [Concomitant]

REACTIONS (6)
  - CEREBROVASCULAR ACCIDENT [None]
  - IDIOPATHIC THROMBOCYTOPENIC PURPURA [None]
  - LEUKAEMIA PLASMACYTIC [None]
  - LYMPHOMA [None]
  - RENAL FAILURE [None]
  - VIRAL INFECTION [None]
